FAERS Safety Report 6635853-X (Version None)
Quarter: 2010Q1

REPORT INFORMATION
  Report Type: 
  Country: None (occurrence: None)
  Receive Date: 20100316
  Receipt Date: 20100305
  Transmission Date: 20100710
  Serious: Yes (Hospitalization)
  Sender: FDA-Public Use
  Company Number: US-JNJFOC-20100302424

PATIENT
  Sex: Female
  Weight: 27.9 kg

DRUGS (9)
  1. INFLIXIMAB [Suspect]
     Indication: CROHN'S DISEASE
     Route: 042
  2. HYDROCORTISONE [Concomitant]
  3. BUDESONIDE [Concomitant]
  4. ANTIBIOTICS [Concomitant]
     Indication: INFLAMMATORY BOWEL DISEASE
  5. PREDNISONE [Concomitant]
  6. PROBIOTICS [Concomitant]
  7. FOLIC ACID [Concomitant]
  8. MULTI-VITAMINS [Concomitant]
  9. HUMIRA [Concomitant]

REACTIONS (1)
  - CROHN'S DISEASE [None]
